FAERS Safety Report 10297566 (Version 2)
Quarter: 2014Q4

REPORT INFORMATION
  Report Type: Spontaneous
  Country: BR (occurrence: BR)
  Receive Date: 20140711
  Receipt Date: 20141009
  Transmission Date: 20150528
  Serious: Yes (Hospitalization, Disabling, Other)
  Sender: FDA-Public Use
  Company Number: BR-ASTRAZENECA-2014SE49003

PATIENT
  Age: 706 Month
  Sex: Female
  Weight: 90 kg

DRUGS (9)
  1. ABLOK PLUS [Suspect]
     Active Substance: ATENOLOL\CHLORTHALIDONE
     Route: 065
  2. OMEPRAZOLE. [Suspect]
     Active Substance: OMEPRAZOLE
     Indication: GASTRIC DISORDER
     Dosage: EVERY MORNING
     Route: 048
     Dates: start: 2007
  3. DEPAKENE [Concomitant]
     Active Substance: VALPROIC ACID
     Indication: BIPOLAR DISORDER
     Dosage: AT NIGHT
     Route: 048
     Dates: start: 2007
  4. CRESTOR [Suspect]
     Active Substance: ROSUVASTATIN CALCIUM
     Indication: BLOOD CHOLESTEROL ABNORMAL
     Route: 048
     Dates: start: 2007
  5. GLIFAGE [Suspect]
     Active Substance: METFORMIN HYDROCHLORIDE
     Indication: DIABETES MELLITUS
     Route: 048
     Dates: start: 2007
  6. PLASIL [Concomitant]
     Active Substance: METOCLOPRAMIDE HYDROCHLORIDE
     Dosage: AS REQUIRED
  7. LIPIDIL [Concomitant]
     Active Substance: FENOFIBRATE
     Indication: BLOOD CHOLESTEROL ABNORMAL
     Dosage: DAILY
     Route: 048
     Dates: start: 2007
  8. LIPANON [Concomitant]
     Active Substance: FENOFIBRATE
  9. PURAN [Concomitant]
     Active Substance: LEVOTHYROXINE SODIUM
     Indication: PITUITARY TUMOUR
     Dosage: DAILY
     Route: 048
     Dates: start: 2007

REACTIONS (8)
  - Pituitary tumour [Recovered/Resolved]
  - Haemorrhagic stroke [Recovered/Resolved with Sequelae]
  - Aphonia [Recovered/Resolved]
  - Neoplasm recurrence [Recovered/Resolved]
  - Fistula [Not Recovered/Not Resolved]
  - Dysgraphia [Recovered/Resolved]
  - Nausea [Recovering/Resolving]
  - Hemiplegia [Recovered/Resolved]

NARRATIVE: CASE EVENT DATE: 201310
